FAERS Safety Report 24825430 (Version 1)
Quarter: 2025Q1

REPORT INFORMATION
  Report Type: Spontaneous
  Country: US (occurrence: US)
  Receive Date: 20250109
  Receipt Date: 20250109
  Transmission Date: 20250409
  Serious: No
  Sender: NOVARTIS
  Company Number: US-002147023-NVSC2025US003498

PATIENT
  Sex: Female
  Weight: 92 kg

DRUGS (1)
  1. SCEMBLIX [Suspect]
     Active Substance: ASCIMINIB HYDROCHLORIDE
     Indication: Chronic myeloid leukaemia (in remission)
     Dosage: 40 MG, BID
     Route: 048

REACTIONS (6)
  - Nasopharyngitis [Unknown]
  - Influenza like illness [Unknown]
  - Pyrexia [Unknown]
  - Myalgia [Unknown]
  - Nasal congestion [Unknown]
  - Cough [Unknown]
